FAERS Safety Report 4742322-0 (Version None)
Quarter: 2005Q3

REPORT INFORMATION
  Report Type: 
  Country: None (occurrence: None)
  Receive Date: 20050811
  Receipt Date: 20050406
  Transmission Date: 20060218
  Serious: No
  Sender: FDA-Public Use
  Company Number: US-GLAXOSMITHKLINE-A0552997A

PATIENT
  Age: 54 Year
  Sex: Female

DRUGS (4)
  1. PAXIL CR [Suspect]
     Dosage: 37.5MG PER DAY
     Route: 048
     Dates: start: 20041001
  2. RISPERDAL [Concomitant]
  3. KLONOPIN [Concomitant]
  4. PLENDIL [Concomitant]

REACTIONS (2)
  - ABNORMAL DREAMS [None]
  - ANXIETY [None]
